FAERS Safety Report 14894053 (Version 2)
Quarter: 2018Q2

REPORT INFORMATION
  Report Type: Spontaneous
  Country: US (occurrence: US)
  Receive Date: 20180514
  Receipt Date: 20180516
  Transmission Date: 20180711
  Serious: No
  Sender: FDA-Public Use
  Company Number: US-BIOGEN-2015BI149556

PATIENT
  Sex: Male

DRUGS (1)
  1. AVONEX [Suspect]
     Active Substance: INTERFERON BETA-1A
     Indication: MULTIPLE SCLEROSIS
     Route: 030
     Dates: start: 20000822, end: 20070214

REACTIONS (8)
  - Asthenia [Unknown]
  - Relapsing multiple sclerosis [Unknown]
  - Apathy [Unknown]
  - Gastrointestinal disorder [Unknown]
  - Influenza like illness [Unknown]
  - Malaise [Unknown]
  - Procedural anxiety [Unknown]
  - Drug effect decreased [Unknown]
